FAERS Safety Report 4565569-5 (Version None)
Quarter: 2005Q1

REPORT INFORMATION
  Report Type: 
  Country: None (occurrence: None)
  Receive Date: 20050125
  Receipt Date: 20050125
  Transmission Date: 20050727
  Serious: Yes (Life-Threatening, Hospitalization, Disabling, Other)
  Sender: FDA-Public Use
  Company Number: None

PATIENT
  Age: 42 Year
  Sex: Male
  Weight: 83.9154 kg

DRUGS (5)
  1. REDUCTIL     10 MG      ABBOTT / KNOLL [Suspect]
     Indication: OVERWEIGHT
     Dosage: 10 MG    DAILY    ORAL
     Route: 048
     Dates: start: 20041024, end: 20041101
  2. OXYCONTIN [Concomitant]
  3. VALIUM [Concomitant]
  4. XANAX [Concomitant]
  5. MILD TRANQUILIZER [Concomitant]

REACTIONS (14)
  - ACTIVITIES OF DAILY LIVING IMPAIRED [None]
  - ANXIETY [None]
  - ARTHRALGIA [None]
  - ASTHENIA [None]
  - CONVULSION [None]
  - DECREASED ACTIVITY [None]
  - HUMERUS FRACTURE [None]
  - INSOMNIA [None]
  - MOBILITY DECREASED [None]
  - MULTIPLE FRACTURES [None]
  - MUSCLE INJURY [None]
  - MUSCLE SPASMS [None]
  - PAIN [None]
  - TENDON DISORDER [None]
